FAERS Safety Report 5226044-8 (Version None)
Quarter: 2007Q1

REPORT INFORMATION
  Report Type: 
  Country: None (occurrence: None)
  Receive Date: 20070129
  Receipt Date: 20070119
  Transmission Date: 20070707
  Serious: Yes (Hospitalization)
  Sender: FDA-Public Use
  Company Number: 2007SP000310

PATIENT
  Age: 5 Year
  Sex: Male

DRUGS (4)
  1. TEMODAL [Suspect]
     Indication: GLIOMA
     Dosage: 65 MG;QD;PO
     Route: 048
     Dates: start: 20061229, end: 20070105
  2. DEXAMETHASONE TAB [Concomitant]
  3. PHENOBARBITAL TAB [Concomitant]
  4. RADIATION THERAPY [Concomitant]

REACTIONS (5)
  - BRAIN STEM HAEMORRHAGE [None]
  - DIZZINESS [None]
  - GENERAL PHYSICAL HEALTH DETERIORATION [None]
  - NAUSEA [None]
  - VOMITING [None]
